FAERS Safety Report 9692724 (Version 2)
Quarter: 2013Q4

REPORT INFORMATION
  Report Type: Spontaneous
  Country: US (occurrence: US)
  Receive Date: 20131118
  Receipt Date: 20131205
  Transmission Date: 20140711
  Serious: Yes (Death, Hospitalization)
  Sender: FDA-Public Use
  Company Number: PHEH2013US024028

PATIENT
  Sex: Male
  Weight: 84 kg

DRUGS (2)
  1. ZOMETA [Suspect]
     Indication: METASTASES TO BONE
     Dosage: 4 MG, UNK
     Route: 042
     Dates: start: 20131018, end: 20131018
  2. ZOMETA [Suspect]
     Indication: LUNG CANCER METASTATIC

REACTIONS (2)
  - Lung cancer metastatic [Fatal]
  - Malignant neoplasm progression [Fatal]
